FAERS Safety Report 11009163 (Version 1)
Quarter: 2015Q2

REPORT INFORMATION
  Report Type: Spontaneous
  Country: US (occurrence: None)
  Receive Date: 20150409
  Receipt Date: 20150409
  Transmission Date: 20150821
  Serious: Yes (Hospitalization)
  Sender: FDA-Public Use
  Company Number: None

PATIENT
  Age: 28 Year
  Sex: Female
  Weight: 63.5 kg

DRUGS (3)
  1. MULTI-VITAMIN [Suspect]
     Active Substance: .ALPHA.-TOCOPHEROL ACETATE, DL-\ASCORBIC ACID\CYANOCOBALAMIN\FLUORIDE ION\FOLIC ACID\NIACIN\PYRIDOXINE\RIBOFLAVIN\THIAMINE\VITAMIN A\VITAMIN D
  2. VITAMIN D3 [Suspect]
     Active Substance: CHOLECALCIFEROL
  3. PARAGARD T 380A [Suspect]
     Active Substance: COPPER
     Indication: CONTRACEPTION
     Dates: start: 20120406, end: 20150403

REACTIONS (2)
  - Embedded device [None]
  - Device breakage [None]

NARRATIVE: CASE EVENT DATE: 20150403
